FAERS Safety Report 8830872 (Version 1)
Quarter: 2012Q4

REPORT INFORMATION
  Report Type: 
  Country: ES (occurrence: ES)
  Receive Date: 20121008
  Receipt Date: 20121008
  Transmission Date: 20130627
  Serious: Yes (Life-Threatening, Hospitalization, Other)
  Sender: FDA-Public Use
  Company Number: ES-SANOFI-AVENTIS-2012SA024403

PATIENT
  Age: 67 Year
  Sex: Female
  Weight: 66 kg

DRUGS (18)
  1. LEFLUNOMIDE [Suspect]
     Indication: RHEUMATOID ARTHRITIS
     Route: 048
     Dates: start: 20090614
  2. PREDNISONE [Suspect]
     Indication: RHEUMATOID ARTHRITIS
     Route: 048
     Dates: start: 20100114
  3. METHOTREXATE [Suspect]
     Indication: RHEUMATOID ARTHRITIS
     Route: 048
     Dates: end: 20120220
  4. HYDROXYCHLOROQUINE SULFATE [Suspect]
     Indication: RHEUMATOID ARTHRITIS
     Dosage: dose: 200 (units not reported)
     Route: 048
     Dates: start: 20030204, end: 20120220
  5. TOCILIZUMAB [Suspect]
     Indication: RHEUMATOID ARTHRITIS
     Route: 042
     Dates: start: 20110419, end: 20120209
  6. CALCIFEDIOL [Concomitant]
  7. ACETYLCYSTEINE [Concomitant]
  8. DILTIAZEM HYDROCHLORIDE [Concomitant]
  9. OMEPRAZOLE [Concomitant]
     Indication: GASTRIC ULCER PROPHYLAXIS
     Route: 048
  10. CALCIUM DOBESILATE [Concomitant]
  11. DULOXETINE HYDROCHLORIDE [Concomitant]
  12. FLUTICASONE PROPIONATE [Concomitant]
  13. SALMETEROL XINAFOATE [Concomitant]
  14. FOLIC ACID [Concomitant]
     Route: 048
     Dates: start: 20020726
  15. IPRATROPIUM BROMIDE [Concomitant]
  16. CALCIUM CARBONATE [Concomitant]
  17. ATORVASTATIN [Concomitant]
     Indication: HYPERCHOLESTEROLEMIA
     Route: 048
     Dates: start: 2004
  18. ATENOLOL [Concomitant]
     Indication: HYPERTENSION
     Route: 048

REACTIONS (14)
  - Haemoptysis [Recovered/Resolved]
  - Pleural effusion [Recovered/Resolved]
  - Respiratory failure [Recovered/Resolved]
  - Atrial fibrillation [Recovered/Resolved]
  - Embolism [Recovered/Resolved]
  - Critical illness polyneuropathy [Recovered/Resolved]
  - Pneumonia [Recovered/Resolved]
  - Septic shock [Recovered/Resolved]
  - Pneumonia [Recovered/Resolved]
  - Renal failure [Recovered/Resolved]
  - Urinary tract infection enterococcal [Recovered/Resolved]
  - Phlebitis [Recovered/Resolved]
  - Urticaria [Recovered/Resolved]
  - Diarrhoea [Recovered/Resolved]
